FAERS Safety Report 6641740-3 (Version None)
Quarter: 2010Q1

REPORT INFORMATION
  Report Type: 
  Country: None (occurrence: None)
  Receive Date: 20100319
  Receipt Date: 20100311
  Transmission Date: 20100710
  Serious: Yes (Hospitalization)
  Sender: FDA-Public Use
  Company Number: US-BIOGENIDEC-2010BI008230

PATIENT
  Age: 39 Year
  Sex: Female
  Weight: 58 kg

DRUGS (3)
  1. AVONEX [Suspect]
     Indication: MULTIPLE SCLEROSIS
     Route: 030
     Dates: start: 20010501
  2. AVONEX [Suspect]
     Route: 030
  3. AVONEX [Suspect]
     Route: 030

REACTIONS (8)
  - CENTRAL NERVOUS SYSTEM LESION [None]
  - DEPRESSION [None]
  - HYSTERECTOMY [None]
  - INSOMNIA [None]
  - MULTIPLE SCLEROSIS RELAPSE [None]
  - MUSCLE SPASTICITY [None]
  - RADIOTHERAPY TO BRAIN [None]
  - TRIGEMINAL NEURALGIA [None]
